FAERS Safety Report 5200899-5 (Version None)
Quarter: 2007Q1

REPORT INFORMATION
  Report Type: 
  Country: None (occurrence: None)
  Receive Date: 20070108
  Receipt Date: 20070104
  Transmission Date: 20070707
  Serious: Yes (Death, Hospitalization)
  Sender: FDA-Public Use
  Company Number: DE-AVENTIS-200613742DE

PATIENT
  Age: 68 Year
  Sex: Female

DRUGS (7)
  1. TAXOTERE [Suspect]
     Indication: BREAST CANCER
     Route: 042
     Dates: start: 20060529, end: 20060731
  2. DOXORUBICIN HCL [Suspect]
     Indication: BREAST CANCER
     Route: 042
     Dates: start: 20060529, end: 20060731
  3. CYCLOPHOSPHAMIDE [Suspect]
     Indication: BREAST CANCER
     Route: 042
     Dates: start: 20060529, end: 20060731
  4. CORTICOSTEROIDS [Concomitant]
     Dosage: DOSE: NOT REPORTED
  5. ANTIEMETICS AND ANTINAUSEANTS [Concomitant]
     Dosage: DOSE: NOT REPORTED
  6. ANTIHISTAMINES [Concomitant]
     Dosage: DOSE: NOT REPORTED
  7. ALL OTHER THERAPEUTIC PRODUCTS [Concomitant]
     Dosage: DOSE: NOT REPORTED

REACTIONS (4)
  - ACUTE RESPIRATORY DISTRESS SYNDROME [None]
  - BRONCHOPNEUMONIA [None]
  - GENERAL PHYSICAL HEALTH DETERIORATION [None]
  - SEPSIS [None]
